FAERS Safety Report 13743352 (Version 1)
Quarter: 2017Q3

REPORT INFORMATION
  Report Type: Spontaneous
  Country: US (occurrence: US)
  Receive Date: 20170711
  Receipt Date: 20170711
  Transmission Date: 20171127
  Serious: No
  Sender: FDA-Public Use
  Company Number: US-BAYER-2017-132405

PATIENT
  Age: 85 Year
  Sex: Female
  Weight: 57 kg

DRUGS (6)
  1. RESVERATROL [Suspect]
     Active Substance: DIETARY SUPPLEMENT\RESVERATROL
  2. CALTRATE [Concomitant]
     Active Substance: CALCIUM CARBONATE
  3. BIOTIN [Concomitant]
     Active Substance: BIOTIN
  4. MULTIVITAMINS [Concomitant]
     Active Substance: VITAMINS
  5. ALEVE PM [Suspect]
     Active Substance: DIPHENHYDRAMINE HYDROCHLORIDE\NAPROXEN SODIUM
     Indication: PAIN
     Dosage: 1 DF, TID
  6. PROTONIX [Concomitant]
     Active Substance: PANTOPRAZOLE SODIUM

REACTIONS (4)
  - Medical device monitoring error [Unknown]
  - Device ineffective [Unknown]
  - Contraindicated device used [Unknown]
  - Drug effect decreased [Unknown]

NARRATIVE: CASE EVENT DATE: 20170708
